FAERS Safety Report 4388657-5 (Version None)
Quarter: 2004Q2

REPORT INFORMATION
  Report Type: 
  Country: None (occurrence: None)
  Receive Date: 20040624
  Receipt Date: 20040608
  Transmission Date: 20050107
  Serious: Yes (Disabling)
  Sender: FDA-Public Use
  Company Number: 1997AD00507

PATIENT
  Age: 36 Year
  Sex: Male

DRUGS (1)
  1. RHINOCORT [Suspect]
     Dates: start: 19860101, end: 19970601

REACTIONS (9)
  - BLINDNESS UNILATERAL [None]
  - DIABETES MELLITUS [None]
  - DIABETIC RETINOPATHY [None]
  - MACULAR DEGENERATION [None]
  - MACULOPATHY [None]
  - RETINAL HAEMORRHAGE [None]
  - RETINAL MICROANEURYSMS [None]
  - RETINITIS PIGMENTOSA [None]
  - VITREOUS HAEMORRHAGE [None]
